FAERS Safety Report 4331061-6 (Version None)
Quarter: 2004Q2

REPORT INFORMATION
  Report Type: 
  Country: None (occurrence: None)
  Receive Date: 20040405
  Receipt Date: 20040329
  Transmission Date: 20050107
  Serious: Yes (Other)
  Sender: FDA-Public Use
  Company Number: PHBS2004JP04254

PATIENT
  Sex: Male

DRUGS (5)
  1. TEGRETOL [Suspect]
     Indication: DIZZINESS
     Route: 048
  2. CEPHADOL [Concomitant]
     Route: 048
  3. CARNACULIN [Concomitant]
     Route: 048
  4. DILTIAZEM HYDROCHLORIDE [Concomitant]
     Route: 048
  5. ASPIRIN [Concomitant]
     Route: 048

REACTIONS (1)
  - RETINAL HAEMORRHAGE [None]
